FAERS Safety Report 11932104 (Version 1)
Quarter: 2016Q1

REPORT INFORMATION
  Report Type: Spontaneous
  Country: FR (occurrence: FR)
  Receive Date: 20160120
  Receipt Date: 20160120
  Transmission Date: 20160526
  Serious: Yes (Other)
  Sender: FDA-Public Use
  Company Number: FR-ELI_LILLY_AND_COMPANY-FR201601002806

PATIENT
  Age: 64 Year
  Sex: Female

DRUGS (3)
  1. AVASTIN [Suspect]
     Active Substance: BEVACIZUMAB
     Indication: LUNG NEOPLASM MALIGNANT
     Dosage: UNK, UNKNOWN
     Route: 042
     Dates: start: 2015, end: 201509
  2. ALIMTA [Suspect]
     Active Substance: PEMETREXED DISODIUM
     Indication: LUNG NEOPLASM MALIGNANT
     Dosage: UNK, UNKNOWN
     Route: 042
     Dates: start: 2015
  3. CISPLATINE [Suspect]
     Active Substance: CISPLATIN
     Indication: LUNG NEOPLASM MALIGNANT
     Dosage: UNK, UNKNOWN
     Route: 042
     Dates: start: 2015

REACTIONS (3)
  - Ischaemic stroke [Recovered/Resolved]
  - Supraventricular extrasystoles [Unknown]
  - Off label use [Unknown]

NARRATIVE: CASE EVENT DATE: 201504
